FAERS Safety Report 6852475-6 (Version None)
Quarter: 2010Q3

REPORT INFORMATION
  Report Type: 
  Country: None (occurrence: None)
  Receive Date: 20100717
  Receipt Date: 20071113
  Transmission Date: 20110219
  Serious: No
  Sender: FDA-Public Use
  Company Number: US-PFIZER INC-2007097463

PATIENT
  Sex: Female
  Weight: 50.3 kg

DRUGS (3)
  1. CHANTIX [Suspect]
     Indication: SMOKING CESSATION THERAPY
     Route: 048
     Dates: start: 20071112
  2. LOTREL [Concomitant]
  3. PAXIL [Concomitant]

REACTIONS (1)
  - INSOMNIA [None]
